FAERS Safety Report 7557901-5 (Version None)
Quarter: 2011Q2

REPORT INFORMATION
  Report Type: 
  Country: None (occurrence: None)
  Receive Date: 20110620
  Receipt Date: 20110602
  Transmission Date: 20111010
  Serious: Yes (Hospitalization, Congenital Anomaly)
  Sender: FDA-Public Use
  Company Number: A0905844A

PATIENT
  Sex: Male

DRUGS (5)
  1. PAXIL [Suspect]
     Indication: MAJOR DEPRESSION
     Route: 064
  2. FLUOXETINE HCL [Concomitant]
     Indication: MAJOR DEPRESSION
     Dosage: 20MG PER DAY
     Route: 064
  3. PAROXETINE HCL [Suspect]
     Indication: MAJOR DEPRESSION
     Dosage: 30MG TWICE PER DAY
     Route: 064
     Dates: start: 20060101, end: 20070101
  4. ALBUTEROL INHALER [Concomitant]
     Route: 064
  5. PRENATAL VITAMINS [Concomitant]
     Route: 064

REACTIONS (5)
  - DRUG EXPOSURE DURING PREGNANCY [None]
  - CONGENITAL AORTIC ANOMALY [None]
  - VENTRICULAR SEPTAL DEFECT [None]
  - ATRIAL SEPTAL DEFECT [None]
  - ARTERIAL DISORDER [None]
